FAERS Safety Report 9722910 (Version 1)
Quarter: 2013Q4

REPORT INFORMATION
  Report Type: Spontaneous
  Country: US (occurrence: US)
  Receive Date: 20131202
  Receipt Date: 20131202
  Transmission Date: 20140711
  Serious: Yes (Death, Other)
  Sender: FDA-Public Use
  Company Number: US-ASTELLAS-2013US012471

PATIENT
  Age: 56 Year
  Sex: Male

DRUGS (1)
  1. LEXISCAN [Suspect]
     Indication: CARDIAC STRESS TEST
     Dosage: 0.4 MG, OVER A PERIOD OF 12-15 SECONDS
     Route: 042
     Dates: start: 20131119, end: 20131119

REACTIONS (2)
  - Death [Fatal]
  - Blood pressure increased [Unknown]
